FAERS Safety Report 21177226 (Version 1)
Quarter: 2022Q3

REPORT INFORMATION
  Report Type: Spontaneous
  Country: US (occurrence: US)
  Receive Date: 20220805
  Receipt Date: 20220805
  Transmission Date: 20221026
  Serious: No
  Sender: FDA-Public Use
  Company Number: US-ALLERGAN-2221449US

PATIENT
  Age: 62 Year
  Sex: Male

DRUGS (3)
  1. VUITY [Suspect]
     Active Substance: PILOCARPINE HYDROCHLORIDE
     Indication: Presbyopia
     Dosage: 2 GTT, QD
     Route: 047
     Dates: start: 202204, end: 202204
  2. REPATHA [Concomitant]
     Active Substance: EVOLOCUMAB
     Indication: Cerebrovascular accident
  3. REPATHA [Concomitant]
     Active Substance: EVOLOCUMAB
     Indication: Myocardial infarction

REACTIONS (3)
  - Vitreous detachment [Recovered/Resolved]
  - Vitreous floaters [Recovered/Resolved]
  - Eye pain [Recovered/Resolved]

NARRATIVE: CASE EVENT DATE: 20220401
